FAERS Safety Report 7956666-2 (Version None)
Quarter: 2011Q4

REPORT INFORMATION
  Report Type: 
  Country: None (occurrence: None)
  Receive Date: 20111205
  Receipt Date: 20111122
  Transmission Date: 20120403
  Serious: Yes (Hospitalization, Other)
  Sender: FDA-Public Use
  Company Number: US-CELGENEUS-163-21880-11113098

PATIENT
  Age: 83 Year
  Sex: Male

DRUGS (4)
  1. REVLIMID [Suspect]
     Indication: MULTIPLE MYELOMA
     Dosage: 25MG DAILY FOR DAYS 1-21 OR 15MG DAILY
     Route: 048
     Dates: start: 20110802
  2. MELOXICAM [Concomitant]
     Route: 065
  3. ZOMETA [Concomitant]
     Dosage: 4 MILLIGRAM
     Route: 065
  4. DEXAMETHASONE [Suspect]
     Indication: MULTIPLE MYELOMA
     Dosage: 40MG ONCE A WEEK DAYS 1,8,15,22/ 20MG ONCE A WEEK DAYS 1,8,15,22
     Route: 065
     Dates: start: 20110802

REACTIONS (2)
  - RECTAL CANCER [None]
  - DEEP VEIN THROMBOSIS [None]
